FAERS Safety Report 15868759 (Version 1)
Quarter: 2019Q1

REPORT INFORMATION
  Report Type: Spontaneous
  Country: US (occurrence: US)
  Receive Date: 20190103
  Receipt Date: 20190103
  Transmission Date: 20190417
  Serious: Yes (Other)
  Sender: FDA-Public Use
  Company Number: None

PATIENT
  Age: 70 Year
  Sex: Female

DRUGS (3)
  1. METFORMIN [Suspect]
     Active Substance: METFORMIN HYDROCHLORIDE
     Indication: BLOOD GLUCOSE INCREASED
     Dosage: ?          QUANTITY:40 MG MILLIGRAM(S);?
     Dates: start: 20181011, end: 20181026
  2. PRILOSEC [Concomitant]
     Active Substance: OMEPRAZOLE MAGNESIUM
  3. ATORVASTATIN [Suspect]
     Active Substance: ATORVASTATIN
     Indication: BLOOD CHOLESTEROL INCREASED
     Dosage: ?          QUANTITY:1000 MG MILLIGRAM(S);?

REACTIONS (9)
  - Paraesthesia [None]
  - Presyncope [None]
  - Eating disorder [None]
  - Vision blurred [None]
  - Hypoaesthesia oral [None]
  - Tremor [None]
  - Asthenia [None]
  - Headache [None]
  - Impaired driving ability [None]
